FAERS Safety Report 10298882 (Version 3)
Quarter: 2015Q3

REPORT INFORMATION
  Report Type: Spontaneous
  Country: US (occurrence: US)
  Receive Date: 20140711
  Receipt Date: 20150814
  Transmission Date: 20151125
  Serious: No
  Sender: FDA-Public Use
  Company Number: US-GILEAD-2013-0082461

PATIENT
  Age: 38 Year
  Sex: Female
  Weight: 62.14 kg

DRUGS (6)
  1. AMLODIPINE [Concomitant]
     Active Substance: AMLODIPINE BESYLATE
  2. DOXYCYCLINE. [Concomitant]
     Active Substance: DOXYCYCLINE
  3. MAGNESIUM OXIDE. [Concomitant]
     Active Substance: MAGNESIUM OXIDE
  4. FUROSEMIDE. [Concomitant]
     Active Substance: FUROSEMIDE
  5. LETAIRIS [Suspect]
     Active Substance: AMBRISENTAN
     Indication: PULMONARY ARTERIAL HYPERTENSION
     Dosage: 5 MG, QD
     Route: 048
     Dates: start: 20130803
  6. DIGOXIN. [Concomitant]
     Active Substance: DIGOXIN

REACTIONS (1)
  - Dyspnoea [Unknown]
